FAERS Safety Report 5423038-4 (Version None)
Quarter: 2007Q3

REPORT INFORMATION
  Report Type: 
  Country: None (occurrence: None)
  Receive Date: 20070822
  Receipt Date: 20070815
  Transmission Date: 20080115
  Serious: Yes (Other)
  Sender: FDA-Public Use
  Company Number: US-PFIZER INC-2007067157

PATIENT
  Age: 62 Year
  Sex: Female

DRUGS (4)
  1. CELEBREX [Suspect]
     Indication: ARTHRALGIA
     Dates: start: 20070501, end: 20070501
  2. CELEBREX [Suspect]
     Indication: MUSCULOSKELETAL STIFFNESS
  3. CELEXA [Suspect]
     Indication: ANXIETY
     Dosage: DAILY DOSE:20MG
     Route: 048
     Dates: start: 20050701, end: 20070701
  4. DARVOCET [Suspect]

REACTIONS (3)
  - ARTHRALGIA [None]
  - DIARRHOEA [None]
  - MUSCULOSKELETAL STIFFNESS [None]
